FAERS Safety Report 25247951 (Version 1)
Quarter: 2025Q2

REPORT INFORMATION
  Report Type: Spontaneous
  Country: US (occurrence: US)
  Receive Date: 20250429
  Receipt Date: 20250429
  Transmission Date: 20250717
  Serious: No
  Sender: JOHNSON AND JOHNSON
  Company Number: US-JNJFOC-20250430013

PATIENT
  Age: 54 Year
  Sex: Male

DRUGS (17)
  1. OPSUMIT [Suspect]
     Active Substance: MACITENTAN
     Indication: Pulmonary arterial hypertension
     Route: 048
  2. TREPROSTINIL SODIUM [Suspect]
     Active Substance: TREPROSTINIL SODIUM
     Indication: Pulmonary arterial hypertension
     Dates: start: 20170509
  3. FIBER LAX [Concomitant]
     Active Substance: CALCIUM POLYCARBOPHIL
  4. PREDNISONE [Concomitant]
     Active Substance: PREDNISONE
  5. LASIX [Concomitant]
     Active Substance: FUROSEMIDE
  6. FLONASE ALLERGY RELIEF [Concomitant]
     Active Substance: FLUTICASONE PROPIONATE
  7. METOPROLOL SUCCINATE [Concomitant]
     Active Substance: METOPROLOL SUCCINATE
  8. AMOXICILLIN [Concomitant]
     Active Substance: AMOXICILLIN
  9. OXYGEN [Concomitant]
     Active Substance: OXYGEN
  10. WARFARIN SODIUM [Concomitant]
     Active Substance: WARFARIN SODIUM
  11. IRON [Concomitant]
     Active Substance: IRON
  12. CYCLOSPORINE [Concomitant]
     Active Substance: CYCLOSPORINE
  13. ULORIC [Concomitant]
     Active Substance: FEBUXOSTAT
  14. CALCITRIOL [Concomitant]
     Active Substance: CALCITRIOL
  15. VITAMIN D3 [Concomitant]
     Active Substance: CHOLECALCIFEROL
  16. LOSARTAN POTASSIUM [Concomitant]
     Active Substance: LOSARTAN POTASSIUM
  17. SODIUM BICARBONATE [Concomitant]
     Active Substance: SODIUM BICARBONATE

REACTIONS (1)
  - Dizziness [Unknown]
